FAERS Safety Report 8493284-4 (Version None)
Quarter: 2012Q3

REPORT INFORMATION
  Report Type: 
  Country: None (occurrence: None)
  Receive Date: 20120706
  Receipt Date: 20120628
  Transmission Date: 20120928
  Serious: Yes (Hospitalization, Other)
  Sender: FDA-Public Use
  Company Number: US-CELGENEUS-163-21880-12051256

PATIENT
  Sex: Female
  Weight: 85.806 kg

DRUGS (6)
  1. REVLIMID [Suspect]
     Indication: PLASMACYTOMA
  2. ACYCLOVIR [Concomitant]
     Route: 065
  3. LEXAPRO [Concomitant]
     Route: 065
  4. REVLIMID [Suspect]
     Dosage: 10 MILLIGRAM
     Route: 048
     Dates: start: 20110519, end: 20120418
  5. CALCIUM CARBONATE [Concomitant]
     Route: 065
  6. LOVENOX [Concomitant]
     Dosage: 150
     Route: 065
     Dates: start: 20100101

REACTIONS (2)
  - PLASMACYTOMA [None]
  - LEUKAEMIA PLASMACYTIC [None]
